FAERS Safety Report 7577978-0 (Version None)
Quarter: 2011Q2

REPORT INFORMATION
  Report Type: 
  Country: None (occurrence: None)
  Receive Date: 20110628
  Receipt Date: 20110622
  Transmission Date: 20111010
  Serious: Yes (Other)
  Sender: FDA-Public Use
  Company Number: CR-ROCHE-785182

PATIENT
  Sex: Female

DRUGS (1)
  1. BONIVA [Suspect]
     Indication: OSTEOPOROSIS
     Dosage: FREQ: MONTHLY
     Route: 048
     Dates: start: 20110327, end: 20110527

REACTIONS (3)
  - TOOTH DISORDER [None]
  - ARTHRALGIA [None]
  - ONYCHOCLASIS [None]
